FAERS Safety Report 7142111-6 (Version None)
Quarter: 2010Q4

REPORT INFORMATION
  Report Type: 
  Country: None (occurrence: None)
  Receive Date: 20101207
  Receipt Date: 20101201
  Transmission Date: 20110411
  Serious: Yes (Death, Hospitalization)
  Sender: FDA-Public Use
  Company Number: DE-BRISTOL-MYERS SQUIBB COMPANY-15419138

PATIENT
  Age: 61 Year

DRUGS (6)
  1. CETUXIMAB [Suspect]
     Indication: HEAD AND NECK CANCER
     Dosage: INITIAL DOSE:680MG RECENT DOSE:17NOV10
     Route: 042
     Dates: start: 20101104, end: 20101117
  2. CARBOPLATIN [Suspect]
     Indication: HEAD AND NECK CANCER
     Dosage: 1DF=175 UNITS NS INITIAL DOSE:270 UNITS NS RECENT DOSE:17NOV10
     Route: 042
     Dates: start: 20101104, end: 20101117
  3. DOCETAXEL [Suspect]
     Indication: HEAD AND NECK CANCER
     Dosage: 1DF=56 UNITS NS INITIAL DOSE:54 UNITS NS RECENT DOSE:17NOV10
     Route: 042
     Dates: start: 20101104, end: 20101117
  4. PREDNISOLONE [Concomitant]
     Dosage: DOSE: 1-0-1/2
     Route: 048
  5. ATROVENT [Concomitant]
  6. THEOPHYLLINE [Concomitant]
     Route: 048

REACTIONS (1)
  - SEPSIS [None]
